FAERS Safety Report 11881734 (Version 1)
Quarter: 2015Q4

REPORT INFORMATION
  Report Type: Spontaneous
  Country: US (occurrence: US)
  Receive Date: 20151231
  Receipt Date: 20151231
  Transmission Date: 20160305
  Serious: Yes (Death)
  Sender: FDA-Public Use
  Company Number: US-UNITED THERAPEUTICS-UNT-2015-016256

PATIENT
  Age: 64 Year
  Sex: Male
  Weight: 63.49 kg

DRUGS (1)
  1. REMODULIN [Suspect]
     Active Substance: TREPROSTINIL
     Indication: PULMONARY ARTERIAL HYPERTENSION
     Dosage: 0.16 ?G/KG, CONTINUING
     Route: 058
     Dates: start: 20120116

REACTIONS (1)
  - Death [Fatal]

NARRATIVE: CASE EVENT DATE: 20151218
